FAERS Safety Report 10144134 (Version 1)
Quarter: 2014Q2

REPORT INFORMATION
  Report Type: Spontaneous
  Country: US (occurrence: US)
  Receive Date: 20140430
  Receipt Date: 20140430
  Transmission Date: 20141212
  Serious: No
  Sender: FDA-Public Use
  Company Number: US-TEVA-478904USA

PATIENT
  Sex: 0

DRUGS (2)
  1. PARAGARD 380A [Suspect]
     Indication: CONTRACEPTION
     Route: 015
  2. PARAGARD 380A [Suspect]
     Route: 015

REACTIONS (2)
  - Pain [Unknown]
  - Complication of device insertion [Unknown]
